FAERS Safety Report 14750343 (Version 1)
Quarter: 2018Q2

REPORT INFORMATION
  Report Type: Spontaneous
  Country: FR (occurrence: FR)
  Receive Date: 20180412
  Receipt Date: 20180412
  Transmission Date: 20180711
  Serious: Yes (Other)
  Sender: FDA-Public Use
  Company Number: FR-MERCK KGAA-2045626

PATIENT
  Sex: Female

DRUGS (2)
  1. NOVOTHYROX [Suspect]
     Active Substance: LEVOTHYROXINE SODIUM
  2. NOVOTHYROX [Suspect]
     Active Substance: LEVOTHYROXINE SODIUM
     Indication: AUTOIMMUNE THYROIDITIS

REACTIONS (9)
  - Gastrointestinal disorder [None]
  - Hyperthyroidism [None]
  - Feeling cold [None]
  - Dizziness [None]
  - Weight increased [None]
  - Hypothyroidism [None]
  - Libido decreased [None]
  - Malaise [None]
  - Decreased appetite [None]
